FAERS Safety Report 8766927 (Version 2)
Quarter: 2012Q4

REPORT INFORMATION
  Report Type: 
  Country: US (occurrence: US)
  Receive Date: 20120904
  Receipt Date: 20121016
  Transmission Date: 20130627
  Serious: Yes (Other)
  Sender: FDA-Public Use
  Company Number: US-PFIZER INC-2012213136

PATIENT
  Age: 61 Year
  Sex: Male
  Weight: 90.7 kg

DRUGS (2)
  1. VIAGRA [Suspect]
     Indication: ERECTILE DYSFUNCTION
     Dosage: 100 mg, as needed
     Route: 048
     Dates: start: 20120721
  2. ZOCOR [Concomitant]
     Indication: BLOOD CHOLESTEROL INCREASED
     Dosage: UNK, 1x/day
     Dates: start: 2002

REACTIONS (2)
  - Prostatic specific antigen abnormal [Unknown]
  - Drug ineffective [Unknown]
